FAERS Safety Report 13387998 (Version 5)
Quarter: 2017Q2

REPORT INFORMATION
  Report Type: Report from Study
  Country: None (occurrence: BE)
  Receive Date: 20170330
  Receipt Date: 20170518
  Transmission Date: 20170830
  Serious: Yes (Hospitalization, Other)
  Sender: FDA-Public Use
  Company Number: BE-ABBVIE-17P-013-1916238-00

PATIENT
  Age: 73 Year
  Sex: Male

DRUGS (7)
  1. DUODOPA [Suspect]
     Active Substance: CARBIDOPA\LEVODOPA
     Dosage: AM=2ML, CD=2.3ML/HR DURING 16HRS,ED=2ML
     Route: 050
     Dates: start: 20170414, end: 20170515
  2. DAFLON [Concomitant]
     Active Substance: DIOSMIN\HESPERIDIN
     Indication: PRODUCT USED FOR UNKNOWN INDICATION
  3. TAMSULOSINE [Concomitant]
     Active Substance: TAMSULOSIN HYDROCHLORIDE
     Indication: PRODUCT USED FOR UNKNOWN INDICATION
  4. DUODOPA [Suspect]
     Active Substance: CARBIDOPA\LEVODOPA
     Indication: PARKINSON^S DISEASE
     Dosage: AM: 1 ML?CD: 2.0 ML/HR DURING 16 HRS?ED: 1.5 ML
     Route: 050
     Dates: start: 20170314, end: 20170314
  5. VESICARE [Concomitant]
     Active Substance: SOLIFENACIN SUCCINATE
     Indication: PRODUCT USED FOR UNKNOWN INDICATION
  6. DUODOPA [Suspect]
     Active Substance: CARBIDOPA\LEVODOPA
     Dosage: AM= 3 ML; CD= 2.6 ML/H DURING 16 HRS; ED= 2.0 ML
     Route: 050
     Dates: start: 20170515
  7. DUODOPA [Suspect]
     Active Substance: CARBIDOPA\LEVODOPA
     Dosage: DOSES CONTINUOUSLY MONITORED IN THE CONTEXT OF TITRATION AFTER PEG/J PLACEMENT
     Route: 050
     Dates: start: 20170314, end: 20170414

REACTIONS (10)
  - Muscle rigidity [Unknown]
  - Constipation [Not Recovered/Not Resolved]
  - Stress [Unknown]
  - Intestinal obstruction [Unknown]
  - Stoma site pain [Unknown]
  - Abdominal pain [Not Recovered/Not Resolved]
  - Freezing phenomenon [Not Recovered/Not Resolved]
  - Dyskinesia [Not Recovered/Not Resolved]
  - Chemical peritonitis [Unknown]
  - Drug effect incomplete [Unknown]

NARRATIVE: CASE EVENT DATE: 20170314
